FAERS Safety Report 24324406 (Version 2)
Quarter: 2024Q4

REPORT INFORMATION
  Report Type: Spontaneous
  Country: US (occurrence: US)
  Receive Date: 20240916
  Receipt Date: 20241014
  Transmission Date: 20250114
  Serious: Yes (Hospitalization, Other)
  Sender: FRESENIUS KABI
  Company Number: US-FreseniusKabi-FK202413493

PATIENT
  Age: 67 Year
  Sex: Male
  Weight: 88.9 kg

DRUGS (11)
  1. MESNA [Suspect]
     Active Substance: MESNA
     Indication: Acute lymphocytic leukaemia
     Dosage: CYCLIC (CYCLE 1, 3, SCHEDULE DAYS 1-3)
     Route: 042
     Dates: start: 20240422
  2. CYCLOPHOSPHAMIDE [Suspect]
     Active Substance: CYCLOPHOSPHAMIDE
     Indication: Acute lymphocytic leukaemia
     Dosage: CYCLIC (CYCLE 1, 3 SCHEDULE EVERY 12 HRS X 6 DOSES, DAYS 1-3)?TOTAL DOSE  ADMINISTERED: 330 MG, LAST
     Route: 042
     Dates: start: 20240422
  3. DEXAMETHASONE [Suspect]
     Active Substance: DEXAMETHASONE
     Indication: Acute lymphocytic leukaemia
     Dosage: CYCLIC (CYCLE 1, 3, SCHEDULE DAYS 1-4, DAYS 11-14, IV OR PO).?TOTAL DOSE ADMINISTERED: 20 MG, LAST A
     Dates: start: 20240422
  4. METHYLPREDNISOLONE SODIUM SUCCINATE [Suspect]
     Active Substance: METHYLPREDNISOLONE SODIUM SUCCINATE
     Indication: Acute lymphocytic leukaemia
     Dosage: CYCLIC (CYCLE 2, 4, SCHEDULE EVERY 12 HRS X 6 DOSES, DAYS 1-3)?FORM OF ADMINISTRATION: POWDER FOR SO
     Route: 042
     Dates: start: 20240522
  5. INOTUZUMAB OZOGAMICIN [Suspect]
     Active Substance: INOTUZUMAB OZOGAMICIN
     Indication: Acute lymphocytic leukaemia
     Dosage: CYCLIC (CYCLE 1-4. CYCLE 1: TOTAL 0.9  MG/M2. CYCLES 2, 3, 4: TOTAL 0.6 MG/M2. SCHEDULE CYCLE 1: 0.6
     Route: 042
     Dates: start: 20240422
  6. METHOTREXATE SODIUM [Suspect]
     Active Substance: METHOTREXATE SODIUM
     Indication: Acute lymphocytic leukaemia
     Dosage: CYCLE 1-2, SCHEDULE DAY 2, DAY 8
     Route: 037
     Dates: start: 20240423
  7. METHOTREXATE SODIUM [Suspect]
     Active Substance: METHOTREXATE SODIUM
     Dosage: CYCLIC (CYCLE 2, 4, SCHEDULE DAY 1)
     Route: 042
  8. CYTARABINE [Suspect]
     Active Substance: CYTARABINE
     Indication: Acute lymphocytic leukaemia
     Dosage: CYCLIC (CYCLE 1-2, SCHEDULE DAY 2, DAY 8)
     Route: 037
     Dates: start: 20240423
  9. CYTARABINE [Suspect]
     Active Substance: CYTARABINE
     Dosage: CYCLIC (CYCLE 2, 4. DOSE 0.5 G/M2/DOSE. SCHEDULE EVERY 12 HRS X 4 DOSES, DAYS 2, 3)
     Route: 042
  10. VINCRISTINE SULFATE [Suspect]
     Active Substance: VINCRISTINE SULFATE
     Indication: Acute lymphocytic leukaemia
     Dosage: 2 MG, CYCLE 1, 3, SCHEDULE DAY 1, DAY 8?TOTAL DOSE ADMINISTERED: 2 MG, LAST ADMINISTERED DATE: 24JUN
     Route: 042
     Dates: start: 20240422
  11. RITUXIMAB [Suspect]
     Active Substance: RITUXIMAB
     Indication: Acute lymphocytic leukaemia
     Dosage: CYCLE 1-4, SCHEDULE DAY 2, DAY 8?ON 28JUN2024, HE WAS TREATED WITH RITUXIMAB
     Route: 042
     Dates: start: 20240423

REACTIONS (3)
  - Syncope [Recovered/Resolved]
  - Off label use [Unknown]
  - Haemorrhoids [Unknown]

NARRATIVE: CASE EVENT DATE: 20240627
